FAERS Safety Report 8610805-9 (Version None)
Quarter: 2012Q3

REPORT INFORMATION
  Report Type: 
  Country: None (occurrence: None)
  Receive Date: 20120822
  Receipt Date: 20120821
  Transmission Date: 20120928
  Serious: Yes (Other)
  Sender: FDA-Public Use
  Company Number: US-JNJFOC-20120706240

PATIENT
  Sex: Male

DRUGS (2)
  1. STELARA [Suspect]
     Indication: PSORIASIS
     Route: 058
     Dates: start: 20120615
  2. CORTICOSTEROID [Concomitant]
     Indication: PSORIASIS
     Route: 061

REACTIONS (10)
  - ASTHMA [None]
  - FATIGUE [None]
  - DIZZINESS [None]
  - OROPHARYNGEAL PAIN [None]
  - BLOOD TRIGLYCERIDES INCREASED [None]
  - PSORIASIS [None]
  - HEADACHE [None]
  - BLOOD CHOLESTEROL INCREASED [None]
  - INJECTION SITE PAIN [None]
  - FEELING ABNORMAL [None]
